FAERS Safety Report 7379298-6 (Version None)
Quarter: 2011Q1

REPORT INFORMATION
  Report Type: 
  Country: None (occurrence: None)
  Receive Date: 20110329
  Receipt Date: 20110321
  Transmission Date: 20110831
  Serious: Yes (Hospitalization)
  Sender: FDA-Public Use
  Company Number: US-BIOGENIDEC-2010BI018690

PATIENT
  Age: 40 Year
  Sex: Male
  Weight: 70 kg

DRUGS (2)
  1. AVONEX [Suspect]
     Indication: MULTIPLE SCLEROSIS
     Route: 030
     Dates: start: 20030801
  2. AVONEX [Suspect]
     Route: 030
     Dates: start: 19960701, end: 20030801

REACTIONS (12)
  - FALL [None]
  - LUMBAR VERTEBRAL FRACTURE [None]
  - SPINAL FUSION SURGERY [None]
  - INTERVERTEBRAL DISC DEGENERATION [None]
  - BODY TEMPERATURE INCREASED [None]
  - ASTHENIA [None]
  - MULTIPLE SCLEROSIS RELAPSE [None]
  - INTERVERTEBRAL DISC COMPRESSION [None]
  - BACK PAIN [None]
  - INTERVERTEBRAL DISC PROTRUSION [None]
  - CONTUSION [None]
  - BALANCE DISORDER [None]
